FAERS Safety Report 6283184-2 (Version None)
Quarter: 2009Q3

REPORT INFORMATION
  Report Type: 
  Country: None (occurrence: None)
  Receive Date: 20090724
  Receipt Date: 20090717
  Transmission Date: 20100115
  Serious: Yes (Hospitalization)
  Sender: FDA-Public Use
  Company Number: B0585046A

PATIENT
  Age: 33 Year
  Sex: Male

DRUGS (2)
  1. PAXIL [Suspect]
     Indication: PANIC DISORDER
     Dosage: 30MG PER DAY
     Route: 048
     Dates: end: 20090712
  2. SOLANAX [Concomitant]
     Dosage: .8MG THREE TIMES PER DAY
     Route: 048
     Dates: end: 20090712

REACTIONS (6)
  - ALTERED STATE OF CONSCIOUSNESS [None]
  - HYPERREFLEXIA [None]
  - HYPERTONIA [None]
  - PYREXIA [None]
  - SEROTONIN SYNDROME [None]
  - TREMOR [None]
